FAERS Safety Report 10799180 (Version 1)
Quarter: 2015Q1

REPORT INFORMATION
  Report Type: Spontaneous
  Country: US (occurrence: US)
  Receive Date: 20150216
  Receipt Date: 20150216
  Transmission Date: 20150721
  Serious: No
  Sender: FDA-Public Use
  Company Number: US-ALLERGAN-1402672US

PATIENT
  Age: 76 Year
  Sex: Female

DRUGS (3)
  1. TEARS ADVANCED MOISTURE SPRAY [Concomitant]
     Indication: EYE LUBRICATION THERAPY
     Route: 061
  2. OCUSOFT LIDSCRUB [Concomitant]
     Indication: PRODUCT USED FOR UNKNOWN INDICATION
  3. RESTASIS [Suspect]
     Active Substance: CYCLOSPORINE
     Indication: DRY EYE
     Dosage: 2 GTT, UNK
     Route: 047
     Dates: start: 201302, end: 20140208

REACTIONS (4)
  - Instillation site foreign body sensation [Unknown]
  - Visual impairment [Unknown]
  - Swelling face [Recovering/Resolving]
  - Visual acuity reduced [Unknown]
